FAERS Safety Report 9222606 (Version 1)
Quarter: 2013Q1

REPORT INFORMATION
  Report Type: Spontaneous
  Country: US (occurrence: US)
  Receive Date: 20120914
  Receipt Date: 20120914
  Transmission Date: 20140127
  Serious: Yes (Other)
  Sender: FDA-Public Use
  Company Number: JPI-P-021459

PATIENT
  Age: 43 Year
  Sex: Female
  Weight: 53.52 kg

DRUGS (12)
  1. XYREM (500 MG/ML SOLUTION)(SODIUM OXYBATE) [Suspect]
     Indication: CATAPLEXY
     Dosage: TWO DOSES OF 3 GM TAKEN AT BEDTIME/NIGHTLY.
     Route: 048
     Dates: start: 20120512, end: 20120517
  2. LAMOTRIGINE [Suspect]
     Indication: BIPOLAR DISORDER
  3. ALPRAZOLAM [Concomitant]
  4. DEXTROAMPHETAMINE AND AMPHETAMINE SALTS [Concomitant]
  5. TEMAZEPAM [Concomitant]
  6. NALTREXONE HYDROCHLORIDE [Concomitant]
  7. METHOTREXATE (INJECTION) [Concomitant]
  8. FOLIC ACID [Concomitant]
  9. VILAZODONE HYDROCHLORIDE [Concomitant]
  10. VITAMIN D [Concomitant]
  11. VITAMIN B12 INJECTION [Concomitant]
  12. MAGNESIUM/CALCIUM/ZINC [Concomitant]

REACTIONS (16)
  - Blood pressure increased [None]
  - Amnesia [None]
  - Dry mouth [None]
  - Middle insomnia [None]
  - Headache [None]
  - Oedema peripheral [None]
  - Erythema [None]
  - Skin tightness [None]
  - Asthenia [None]
  - Tremor [None]
  - Fatigue [None]
  - Somnolence [None]
  - Arthralgia [None]
  - Weight decreased [None]
  - Constipation [None]
  - Oedema peripheral [None]
